FAERS Safety Report 9781443 (Version 1)
Quarter: 2013Q4

REPORT INFORMATION
  Report Type: Report from Study
  Country: US (occurrence: US)
  Receive Date: 20131224
  Receipt Date: 20131224
  Transmission Date: 20140711
  Serious: Yes (Hospitalization)
  Sender: FDA-Public Use
  Company Number: US-JNJFOC-20131211545

PATIENT
  Age: 74 Year
  Sex: Male
  Weight: 94 kg

DRUGS (10)
  1. ABIRATERONE ACETATE [Suspect]
     Route: 048
  2. ABIRATERONE ACETATE [Suspect]
     Indication: PROSTATE CANCER METASTATIC
     Route: 048
     Dates: start: 20130627, end: 20131213
  3. PREDNISONE [Suspect]
     Indication: PROSTATE CANCER METASTATIC
     Route: 048
     Dates: start: 20130627, end: 20131213
  4. LEXAPRO [Concomitant]
     Indication: DEPRESSION
     Route: 065
     Dates: start: 2006
  5. VITAMIN D3 [Concomitant]
     Indication: NUTRITIONAL SUPPLEMENTATION
     Route: 065
     Dates: start: 2010
  6. BUPROPION [Concomitant]
     Indication: DEPRESSION
     Route: 065
     Dates: start: 2006
  7. FISH OIL [Concomitant]
     Indication: NUTRITIONAL SUPPLEMENTATION
     Route: 065
     Dates: start: 20100405
  8. MAGNESIUM OXIDE [Concomitant]
     Indication: BLOOD MAGNESIUM DECREASED
     Route: 065
     Dates: start: 20130912
  9. MAGNESIUM OXIDE [Concomitant]
     Indication: BLOOD MAGNESIUM DECREASED
     Route: 065
     Dates: start: 20130725, end: 20131211
  10. LUPRON [Concomitant]
     Indication: PROSTATE CANCER METASTATIC
     Route: 030
     Dates: start: 20050114

REACTIONS (2)
  - Presyncope [Recovered/Resolved]
  - Electrolyte imbalance [Recovered/Resolved]
